FAERS Safety Report 15183367 (Version 4)
Quarter: 2019Q4

REPORT INFORMATION
  Report Type: Spontaneous
  Country: GB (occurrence: GB)
  Receive Date: 20180723
  Receipt Date: 20191119
  Transmission Date: 20200122
  Serious: Yes (Other)
  Sender: FDA-Public Use
  Company Number: GB-PFIZER INC-2018291050

PATIENT
  Age: 69 Year
  Sex: Female

DRUGS (2)
  1. LEVOBUPIVACAINE HYDROCHLORIDE [Suspect]
     Active Substance: LEVOBUPIVACAINE HYDROCHLORIDE
     Dosage: UNK
     Dates: start: 20180428
  2. DEPO-MEDRONE [Suspect]
     Active Substance: METHYLPREDNISOLONE
     Dosage: UNK
     Dates: start: 20180428

REACTIONS (5)
  - Chest discomfort [Unknown]
  - Hypotension [Unknown]
  - Oxygen saturation decreased [Unknown]
  - Erythema [Unknown]
  - Wheezing [Unknown]

NARRATIVE: CASE EVENT DATE: 20180428
